FAERS Safety Report 7792402-0 (Version None)
Quarter: 2011Q4

REPORT INFORMATION
  Report Type: 
  Country: None (occurrence: None)
  Receive Date: 20111003
  Receipt Date: 20110922
  Transmission Date: 20120403
  Serious: Yes (Other)
  Sender: FDA-Public Use
  Company Number: US-ASTRAZENECA-2011SE49836

PATIENT
  Age: 922 Month
  Sex: Female

DRUGS (3)
  1. DIOVAN [Concomitant]
  2. SYMBICORT [Suspect]
     Route: 055
  3. PLAVIX [Concomitant]

REACTIONS (1)
  - CEREBROVASCULAR ACCIDENT [None]
